FAERS Safety Report 15575632 (Version 2)
Quarter: 2018Q4

REPORT INFORMATION
  Report Type: Report from Study
  Country: DE (occurrence: DE)
  Receive Date: 20181101
  Receipt Date: 20181119
  Transmission Date: 20190205
  Serious: Yes (Hospitalization, Other)
  Sender: FDA-Public Use
  Company Number: DE-GILEAD-2015-0142855

PATIENT
  Age: 57 Year
  Sex: Male
  Weight: 65 kg

DRUGS (20)
  1. VITAMIN D [Concomitant]
     Active Substance: CHOLECALCIFEROL
  2. LEDIPASVIR/SOFOSBUVIR [Suspect]
     Active Substance: LEDIPASVIR\SOFOSBUVIR
     Indication: CHRONIC HEPATITIS C
     Dosage: 1 DF, QD
     Route: 048
     Dates: start: 20150120, end: 20150413
  3. PREDNISON [Concomitant]
     Active Substance: PREDNISONE
  4. PANTOZOL CONTROL [Concomitant]
  5. FLUVASTATIN [Concomitant]
     Active Substance: FLUVASTATIN SODIUM
  6. METFORMIN [Concomitant]
     Active Substance: METFORMIN HYDROCHLORIDE
  7. PALLADON [Concomitant]
     Active Substance: HYDROMORPHONE
  8. FOLIC ACID. [Concomitant]
     Active Substance: FOLIC ACID
  9. VITAMIN B COMPLEX [Concomitant]
     Active Substance: CYANOCOBALAMIN\DEXPANTHENOL\NIACINAMIDE\PYRIDOXINE HYDROCHLORIDE\RIBOFLAVIN 5^-PHOSPHATE SODIUM\THIAMINE HYDROCHLORIDE\VITAMIN B COMPLEX
  10. LYRICA [Concomitant]
     Active Substance: PREGABALIN
  11. TOREM COR [Concomitant]
     Active Substance: TORSEMIDE
  12. NOVALGINA [Concomitant]
     Active Substance: METAMIZOLE SODIUM
  13. TACROLIMUS. [Concomitant]
     Active Substance: TACROLIMUS
  14. URSOFALK [Concomitant]
     Active Substance: URSODIOL
  15. IRON [Concomitant]
     Active Substance: IRON
  16. PRAVASTATIN. [Concomitant]
     Active Substance: PRAVASTATIN
  17. VALCYTE [Concomitant]
     Active Substance: VALGANCICLOVIR HYDROCHLORIDE
  18. SPIRONOLACTON [Concomitant]
     Active Substance: SPIRONOLACTONE
  19. UNACID [SULTAMICILLIN TOSILATE] [Concomitant]
  20. CERTICAN [Concomitant]
     Active Substance: EVEROLIMUS

REACTIONS (4)
  - Acute kidney injury [Recovered/Resolved]
  - Pleural effusion [Recovered/Resolved]
  - Hepatic failure [Recovered/Resolved]
  - Pneumonia [Recovered/Resolved]

NARRATIVE: CASE EVENT DATE: 20150122
